FAERS Safety Report 24948412 (Version 2)
Quarter: 2025Q1

REPORT INFORMATION
  Report Type: Spontaneous
  Country: US (occurrence: US)
  Receive Date: 20250210
  Receipt Date: 20250322
  Transmission Date: 20250409
  Serious: No
  Sender: ELI LILLY AND COMPANY
  Company Number: US-ELI_LILLY_AND_COMPANY-US202502004285

PATIENT
  Age: 60 Year
  Sex: Female

DRUGS (3)
  1. VERZENIO [Interacting]
     Active Substance: ABEMACICLIB
     Indication: Breast cancer female
     Dosage: 150 MG, BID
     Route: 048
  2. VERZENIO [Interacting]
     Active Substance: ABEMACICLIB
     Dosage: 50 MG, BID
     Route: 048
  3. KISQALI [Interacting]
     Active Substance: RIBOCICLIB
     Indication: Product used for unknown indication
     Route: 065

REACTIONS (2)
  - Drug interaction [Unknown]
  - Abdominal pain [Unknown]
